FAERS Safety Report 8573754-0 (Version None)
Quarter: 2012Q3

REPORT INFORMATION
  Report Type: 
  Country: None (occurrence: None)
  Receive Date: 20120806
  Receipt Date: 20120727
  Transmission Date: 20120928
  Serious: Yes (Other)
  Sender: FDA-Public Use
  Company Number: JP-GLAXOSMITHKLINE-B0802179A

PATIENT
  Sex: Female

DRUGS (16)
  1. LITHIUM CARBONATE [Concomitant]
     Indication: MANIA
     Dosage: 600MG PER DAY
     Route: 048
     Dates: start: 20120425, end: 20120515
  2. ZOLPIDEM [Concomitant]
     Dosage: 10MG PER DAY
     Route: 048
     Dates: start: 20120101
  3. AMOBAN [Concomitant]
     Dosage: 10MG PER DAY
     Route: 048
  4. FLUNITRAZEPAM [Concomitant]
     Dosage: 4MG PER DAY
     Route: 048
  5. XYZAL [Concomitant]
     Dosage: 5MG PER DAY
     Route: 048
     Dates: end: 20120515
  6. LAMICTAL [Suspect]
     Indication: BIPOLAR I DISORDER
     Dosage: 25MG PER DAY
     Route: 048
     Dates: start: 20120413, end: 20120501
  7. GOODMIN [Concomitant]
     Dosage: .25MG PER DAY
     Route: 048
  8. LAMICTAL [Suspect]
     Dosage: 50MG PER DAY
     Route: 048
     Dates: start: 20120502, end: 20120516
  9. BARNETIL [Concomitant]
     Indication: MANIA
     Dosage: 150MG PER DAY
     Route: 048
     Dates: start: 20120309, end: 20120401
  10. BARNETIL [Concomitant]
     Dosage: 350MG PER DAY
     Route: 048
     Dates: start: 20120402, end: 20120410
  11. SEROQUEL [Concomitant]
     Dosage: 1IUAX PER DAY
     Route: 048
     Dates: start: 20120425, end: 20120501
  12. BARNETIL [Concomitant]
     Dosage: 300MG PER DAY
     Route: 048
     Dates: start: 20120411
  13. LORAZEPAM [Concomitant]
     Indication: BIPOLAR DISORDER
     Route: 048
  14. LITHIUM CARBONATE [Concomitant]
     Indication: MANIA
     Dosage: 600MG PER DAY
     Route: 048
     Dates: start: 20120113, end: 20120424
  15. BIPERIDEN HYDROCHLORIDE TAB [Concomitant]
     Dosage: 2IUAX PER DAY
     Route: 048
     Dates: start: 20120425, end: 20120522
  16. BARNETIL [Concomitant]
     Dosage: 1IUAX PER DAY
     Route: 048
     Dates: start: 20120425, end: 20120501

REACTIONS (2)
  - IRRITABILITY [None]
  - AGGRESSION [None]
